FAERS Safety Report 8287936-9 (Version None)
Quarter: 2012Q2

REPORT INFORMATION
  Report Type: 
  Country: None (occurrence: None)
  Receive Date: 20120416
  Receipt Date: 20120406
  Transmission Date: 20120825
  Serious: Yes (Hospitalization, Other)
  Sender: FDA-Public Use
  Company Number: US-ASTRAZENECA-2011SE56180

PATIENT
  Age: 60 Year
  Sex: Female

DRUGS (6)
  1. FASLODEX [Suspect]
     Route: 030
  2. XANAX [Concomitant]
  3. COLAZEL [Concomitant]
  4. ARIMIDEX [Suspect]
     Route: 048
  5. TOPROL-XL [Suspect]
     Route: 048
  6. LEXAPRO [Concomitant]

REACTIONS (5)
  - NEOPLASM MALIGNANT [None]
  - MEDIASTINAL MASS [None]
  - BREAST CANCER METASTATIC [None]
  - RECURRENT CANCER [None]
  - NASOPHARYNGITIS [None]
